FAERS Safety Report 5710804-0 (Version None)
Quarter: 2008Q2

REPORT INFORMATION
  Report Type: 
  Country: None (occurrence: None)
  Receive Date: 20080417
  Receipt Date: 20080417
  Transmission Date: 20081010
  Serious: Yes (Other)
  Sender: FDA-Public Use
  Company Number: None

PATIENT
  Sex: Female
  Weight: 87.9978 kg

DRUGS (3)
  1. ENBREL [Suspect]
     Indication: RHEUMATOID ARTHRITIS
     Dosage: 50MG QW SQ
     Route: 058
  2. METHOTREXATE PILLS [Concomitant]
  3. INDOCIN [Concomitant]

REACTIONS (6)
  - BRAIN NEOPLASM MALIGNANT [None]
  - HEPATIC NEOPLASM MALIGNANT [None]
  - LUNG NEOPLASM [None]
  - LYMPHADENOPATHY [None]
  - PNEUMONIA [None]
  - ROAD TRAFFIC ACCIDENT [None]
